FAERS Safety Report 20547387 (Version 2)
Quarter: 2022Q1

REPORT INFORMATION
  Report Type: Report from Study
  Country: US (occurrence: US)
  Receive Date: 20220303
  Receipt Date: 20220331
  Transmission Date: 20220424
  Serious: Yes (Other)
  Sender: FDA-Public Use
  Company Number: US-ABBVIE-22K-163-4253545-00

PATIENT
  Age: 56 Year
  Sex: Male

DRUGS (7)
  1. HUMIRA [Suspect]
     Active Substance: ADALIMUMAB
     Indication: Ankylosing spondylitis
     Dosage: CITRATE FREE
     Route: 058
  2. HUMIRA [Suspect]
     Active Substance: ADALIMUMAB
     Indication: Rheumatoid arthritis
     Route: 058
  3. HUMIRA [Suspect]
     Active Substance: ADALIMUMAB
     Indication: Colitis ulcerative
     Route: 058
  4. MODERNA COVID-19 VACCINE [Concomitant]
     Active Substance: ELASOMERAN
     Indication: COVID-19 immunisation
     Dosage: FIRST DOSE
     Route: 030
     Dates: start: 20210607, end: 20210607
  5. MODERNA COVID-19 VACCINE [Concomitant]
     Active Substance: ELASOMERAN
     Dosage: SECOND DOSE
     Route: 030
     Dates: start: 20210706, end: 20210706
  6. MODERNA COVID-19 VACCINE [Concomitant]
     Active Substance: ELASOMERAN
     Dosage: BOOSTER
     Route: 030
  7. FENTANYL [Concomitant]
     Active Substance: FENTANYL
     Indication: Product used for unknown indication

REACTIONS (13)
  - Loss of consciousness [Unknown]
  - Back pain [Unknown]
  - Spinal operation [Unknown]
  - Neck surgery [Unknown]
  - Swelling [Unknown]
  - Fall [Unknown]
  - Road traffic accident [Unknown]
  - Pain [Unknown]
  - Rash [Unknown]
  - Procedural pain [Unknown]
  - Peripheral swelling [Unknown]
  - Positive airway pressure therapy [Unknown]
  - Pain in extremity [Unknown]

NARRATIVE: CASE EVENT DATE: 20220301
